FAERS Safety Report 4411118-1 (Version None)
Quarter: 2004Q2

REPORT INFORMATION
  Report Type: 
  Country: None (occurrence: None)
  Receive Date: 20040630
  Receipt Date: 20040422
  Transmission Date: 20050107
  Serious: No
  Sender: FDA-Public Use
  Company Number: 04P-163-0258399-00

PATIENT
  Age: 51 Year
  Sex: Male
  Weight: 104.3273 kg

DRUGS (3)
  1. HUMIRA [Suspect]
     Indication: RHEUMATOID ARTHRITIS
     Dosage: 40 MG, 1 IN 2 WK, SUBCUTANEOUS
     Route: 058
     Dates: start: 20040201
  2. PREDNISONE TAB [Concomitant]
  3. LESPEROL [Concomitant]

REACTIONS (9)
  - BURNING SENSATION [None]
  - CONDITION AGGRAVATED [None]
  - HEADACHE [None]
  - INFLUENZA [None]
  - INJECTION SITE BURNING [None]
  - NASAL CONGESTION [None]
  - PARAESTHESIA [None]
  - RASH [None]
  - SINUSITIS [None]
